FAERS Safety Report 14607849 (Version 1)
Quarter: 2018Q1

REPORT INFORMATION
  Report Type: Spontaneous
  Country: ZA (occurrence: ZA)
  Receive Date: 20180307
  Receipt Date: 20180307
  Transmission Date: 20180509
  Serious: Yes (Hospitalization)
  Sender: FDA-Public Use
  Company Number: ZA-MYLANLABS-2018M1015514

PATIENT
  Age: 80 Year
  Sex: Male

DRUGS (6)
  1. MYLAN METFORMIN 500 MG [Suspect]
     Active Substance: METFORMIN HYDROCHLORIDE
     Indication: DIABETES MELLITUS
     Dosage: 500 MG, UNK
     Route: 048
  2. PHARMAPRESS                        /00574902/ [Concomitant]
     Active Substance: ENALAPRIL MALEATE
     Indication: HYPERTENSION
     Dosage: 10 MG, UNK
     Route: 048
  3. ASPAVOR [Concomitant]
     Active Substance: ATORVASTATIN
     Indication: BLOOD CHOLESTEROL
     Dosage: 10 MG, UNK
     Route: 048
  4. SERDEP                             /00724402/ [Concomitant]
     Active Substance: FLUOXETINE HYDROCHLORIDE
     Indication: DEPRESSION
     Dosage: 50 MG, UNK
     Route: 048
  5. ELTROXIN [Concomitant]
     Active Substance: LEVOTHYROXINE
     Indication: THYROID DISORDER
     Dosage: 50 ?G, UNK
     Route: 048
  6. ACTRAPHANE [Suspect]
     Active Substance: INSULIN HUMAN
     Indication: DIABETES MELLITUS
     Dosage: 100 IU, UNK
     Route: 030

REACTIONS (2)
  - Overdose [Not Recovered/Not Resolved]
  - Blood glucose abnormal [Not Recovered/Not Resolved]
